FAERS Safety Report 25945305 (Version 1)
Quarter: 2025Q4

REPORT INFORMATION
  Report Type: Spontaneous
  Country: MX (occurrence: MX)
  Receive Date: 20251021
  Receipt Date: 20251021
  Transmission Date: 20260118
  Serious: Yes (Hospitalization, Other)
  Sender: JOHNSON AND JOHNSON
  Company Number: MX-JNJFOC-20251021561

PATIENT
  Age: 25 Year
  Sex: Female

DRUGS (2)
  1. INFLIXIMAB [Suspect]
     Active Substance: INFLIXIMAB
     Indication: Colitis ulcerative
     Route: 041
  2. ISONIAZID [Concomitant]
     Active Substance: ISONIAZID
     Indication: Antibiotic prophylaxis

REACTIONS (5)
  - Disseminated tuberculosis [Recovered/Resolved]
  - Immunosuppression [Unknown]
  - Hepatic enzyme increased [Recovering/Resolving]
  - Pleural effusion [Recovered/Resolved]
  - Atelectasis [Recovered/Resolved]
